FAERS Safety Report 15488654 (Version 2)
Quarter: 2018Q4

REPORT INFORMATION
  Report Type: Spontaneous
  Country: JP (occurrence: JP)
  Receive Date: 20181011
  Receipt Date: 20181018
  Transmission Date: 20190205
  Serious: Yes (Other)
  Sender: FDA-Public Use
  Company Number: JP-PFIZER INC-2018411042

PATIENT
  Age: 25 Year
  Sex: Female

DRUGS (10)
  1. DEXAMETHASONE. [Concomitant]
     Active Substance: DEXAMETHASONE
  2. ETOPOSIDE. [Concomitant]
     Active Substance: ETOPOSIDE
  3. MELPHALAN. [Concomitant]
     Active Substance: MELPHALAN
  4. ADRIACIN [Suspect]
     Active Substance: DOXORUBICIN HYDROCHLORIDE
     Indication: HODGKIN^S DISEASE
     Dosage: UNK
  5. BLEOMYCIN [Concomitant]
     Active Substance: BLEOMYCIN SULFATE
  6. RANIMUSTINE [Concomitant]
     Active Substance: RANIMUSTINE
  7. DACARBAZINE. [Concomitant]
     Active Substance: DACARBAZINE
  8. VINBLASTINE [Concomitant]
     Active Substance: VINBLASTINE
  9. CYTARABINE. [Concomitant]
     Active Substance: CYTARABINE
  10. CISPLATIN. [Concomitant]
     Active Substance: CISPLATIN

REACTIONS (18)
  - Hypoxia [Unknown]
  - Cardiac failure [Unknown]
  - Arthralgia [Recovering/Resolving]
  - Atrioventricular block first degree [Unknown]
  - Acute kidney injury [Unknown]
  - Paraesthesia [Recovering/Resolving]
  - Blood creatinine increased [Recovering/Resolving]
  - Blood uric acid increased [Recovering/Resolving]
  - Blood phosphorus increased [Recovering/Resolving]
  - Proteinuria [Unknown]
  - Ventricular hypokinesia [Recovering/Resolving]
  - Cardiomegaly [Recovering/Resolving]
  - Haemolytic anaemia [Recovering/Resolving]
  - Hypertension [Unknown]
  - Blood lactate dehydrogenase increased [Recovering/Resolving]
  - Ejection fraction decreased [Unknown]
  - Neurological symptom [Unknown]
  - Glomerular filtration rate decreased [Unknown]
